FAERS Safety Report 5015399-5 (Version None)
Quarter: 2006Q2

REPORT INFORMATION
  Report Type: 
  Country: None (occurrence: None)
  Receive Date: 20060601
  Receipt Date: 20060519
  Transmission Date: 20061013
  Serious: Yes (Other)
  Sender: FDA-Public Use
  Company Number: PHEH2006US06607

PATIENT
  Age: 84 Year
  Sex: Female

DRUGS (9)
  1. DIOVAN [Suspect]
     Indication: HYPERTENSION
     Dosage: 80 MG, QD
     Route: 048
     Dates: start: 20030101, end: 20060301
  2. DIOVAN [Suspect]
     Dosage: 160 MG, QD
     Route: 048
     Dates: start: 20060301
  3. DIOVAN [Suspect]
     Dosage: 80 MG, QD
     Route: 048
  4. HYDROCHLOROTHIAZIDE [Suspect]
     Indication: HYPERTENSION
     Dosage: 12.5 MG, QD
     Route: 048
  5. PREDNISONE [Suspect]
     Indication: ASTHMA
     Dosage: UNK
  6. IMDUR [Concomitant]
  7. LIPITOR [Concomitant]
  8. ASPIRIN [Concomitant]
  9. ZANTAC [Concomitant]

REACTIONS (4)
  - ASTHMA [None]
  - BLOOD PRESSURE INCREASED [None]
  - DIABETES MELLITUS [None]
  - DIABETES MELLITUS INADEQUATE CONTROL [None]
